FAERS Safety Report 9850816 (Version 1)
Quarter: 2013Q4

REPORT INFORMATION
  Report Type: Spontaneous
  Country: US (occurrence: None)
  Receive Date: 20131226
  Receipt Date: 20131226
  Transmission Date: 20140711
  Serious: Yes (Other)
  Sender: FDA-Public Use
  Company Number: PHEH2013US003830

PATIENT
  Age: 51 Year
  Sex: Female

DRUGS (4)
  1. COMBIPATCH [Suspect]
     Route: 062
  2. PROTONIX (PANTOPRAZOLE SODIUM SESQUIHYDRATE) [Concomitant]
  3. SINGULAIR (MONTELUKAST SODIUM) TABLET [Concomitant]
  4. VITAMIN C (ASCORBIC ACID) [Concomitant]

REACTIONS (3)
  - Vaginal haemorrhage [None]
  - Headache [None]
  - Product adhesion issue [None]
